FAERS Safety Report 14081627 (Version 2)
Quarter: 2017Q4

REPORT INFORMATION
  Report Type: Spontaneous
  Country: NO (occurrence: NO)
  Receive Date: 20171013
  Receipt Date: 20171030
  Transmission Date: 20180321
  Serious: Yes (Life-Threatening)
  Sender: FDA-Public Use
  Company Number: NO-TEVA-810528ACC

PATIENT
  Age: 26 Year
  Sex: Female

DRUGS (15)
  1. PARACETAMOL [Suspect]
     Active Substance: ACETAMINOPHEN
     Indication: PAIN
     Route: 065
     Dates: start: 20170906, end: 20170906
  2. REMIFENTANIL [Suspect]
     Active Substance: REMIFENTANIL
     Indication: ANAESTHESIA PROCEDURE
     Route: 065
     Dates: start: 20170906, end: 20170906
  3. ALFENTANIL. [Suspect]
     Active Substance: ALFENTANIL
     Indication: ANAESTHESIA PROCEDURE
     Route: 065
     Dates: start: 20170906, end: 20170906
  4. EFEDRIN [Concomitant]
     Active Substance: EPHEDRINE
     Dates: start: 20170906, end: 20170906
  5. FENTANYL. [Suspect]
     Active Substance: FENTANYL
     Indication: ANAESTHESIA PROCEDURE
     Route: 065
     Dates: start: 20170906, end: 20170906
  6. DESFLURANE. [Concomitant]
     Active Substance: DESFLURANE
     Indication: ANAESTHESIA PROCEDURE
     Dates: start: 20170906, end: 20170906
  7. BUPIVACAINE. [Concomitant]
     Active Substance: BUPIVACAINE
     Indication: PAIN
     Dates: start: 20170906, end: 20170906
  8. ONDANSETRON [Concomitant]
     Active Substance: ONDANSETRON
     Indication: PROPHYLAXIS OF NAUSEA AND VOMITING
     Dates: start: 20170906, end: 20170906
  9. RINGER-ACETAT [Concomitant]
     Dates: start: 20170906, end: 20170906
  10. DOXYCYCLINE. [Concomitant]
     Active Substance: DOXYCYCLINE
     Dates: start: 20170906, end: 20170906
  11. PROPOFOL. [Suspect]
     Active Substance: PROPOFOL
     Indication: ANAESTHESIA PROCEDURE
     Route: 065
     Dates: start: 20170906, end: 20170906
  12. RINGER-ACETAT [Concomitant]
     Dates: start: 20170921, end: 20170921
  13. INDOCYANINE GREEN. [Concomitant]
     Active Substance: INDOCYANINE GREEN
     Dates: start: 20170906, end: 20170906
  14. ROBINUL-NEOSTIGMIN [Concomitant]
     Dates: start: 20170906, end: 20170906
  15. ROCURONIUM BROMIDE. [Concomitant]
     Active Substance: ROCURONIUM BROMIDE
     Indication: HYPOTONIA
     Dates: start: 20170906, end: 20170906

REACTIONS (7)
  - Palpitations [Recovered/Resolved]
  - Tachycardia [Recovered/Resolved]
  - Paraesthesia [Recovered/Resolved]
  - Urticaria [Recovered/Resolved]
  - Abdominal pain [Recovered/Resolved]
  - Dyspnoea [Recovered/Resolved]
  - Swollen tongue [Recovered/Resolved]

NARRATIVE: CASE EVENT DATE: 20170906
